FAERS Safety Report 17373613 (Version 1)
Quarter: 2020Q1

REPORT INFORMATION
  Report Type: Spontaneous
  Country: JP (occurrence: JP)
  Receive Date: 20200205
  Receipt Date: 20200205
  Transmission Date: 20200409
  Serious: Yes (Death, Hospitalization, Other)
  Sender: FDA-Public Use
  Company Number: JP-BAYER-2019-204523

PATIENT
  Age: 47 Year
  Sex: Male
  Weight: 63 kg

DRUGS (4)
  1. MOSAPRIDE CITRATE [Concomitant]
     Active Substance: MOSAPRIDE CITRATE
     Dosage: DAILY DOSE 15 MG
     Route: 048
     Dates: start: 20191009, end: 20191105
  2. STIVARGA [Suspect]
     Active Substance: REGORAFENIB
     Indication: COLORECTAL CANCER RECURRENT
     Dosage: 120 MG DAILY, ADMINISTRATION FOR 3 WEEKS, FOLLOWED BY 1 WEEK REST
     Route: 048
     Dates: start: 20191008, end: 20191025
  3. STIVARGA [Suspect]
     Active Substance: REGORAFENIB
     Indication: COLORECTAL CANCER RECURRENT
     Dosage: UNK
     Route: 048
     Dates: end: 20191105
  4. DAIKENCHUTO [Suspect]
     Active Substance: HERBALS
     Dosage: DAILY DOSE 7.5 MG
     Route: 048
     Dates: start: 20191009, end: 20191105

REACTIONS (9)
  - Transaminases increased [Recovering/Resolving]
  - Hepatic function abnormal [Recovering/Resolving]
  - Decreased appetite [Recovering/Resolving]
  - Nausea [Recovering/Resolving]
  - Haemangioma of liver [None]
  - Palmar-plantar erythrodysaesthesia syndrome [Recovering/Resolving]
  - Ascites [None]
  - Off label use [None]
  - Hypophagia [Recovering/Resolving]

NARRATIVE: CASE EVENT DATE: 20191008
